FAERS Safety Report 5129170-7 (Version None)
Quarter: 2006Q4

REPORT INFORMATION
  Report Type: 
  Country: None (occurrence: None)
  Receive Date: 20061011
  Receipt Date: 20060922
  Transmission Date: 20070319
  Serious: Yes (Death, Hospitalization)
  Sender: FDA-Public Use
  Company Number: GB200609005463

PATIENT
  Age: 81 Year
  Sex: Male
  Weight: 80 kg

DRUGS (2)
  1. FLUOXETINE [Suspect]
     Indication: DEPRESSION
     Dosage: 20 MG, ORAL
     Route: 048
     Dates: start: 20060802, end: 20060808
  2. PREDNISOLONE [Concomitant]

REACTIONS (2)
  - SEPSIS [None]
  - TOXIC EPIDERMAL NECROLYSIS [None]
